FAERS Safety Report 7402388-6 (Version None)
Quarter: 2011Q2

REPORT INFORMATION
  Report Type: 
  Country: None (occurrence: None)
  Receive Date: 20110408
  Receipt Date: 20110328
  Transmission Date: 20111010
  Serious: Yes (Other)
  Sender: FDA-Public Use
  Company Number: FR-NOVOPROD-325992

PATIENT
  Age: 61 Year
  Sex: Female

DRUGS (15)
  1. VICTOZA [Suspect]
     Indication: TYPE 2 DIABETES MELLITUS
     Dosage: 1.2 MG, QD
     Route: 065
     Dates: start: 20101111, end: 20110315
  2. ZOLPIDEM [Concomitant]
     Dosage: 1 UNK, EVENING
  3. CELIPROLOL [Concomitant]
     Indication: HYPERTENSION
     Dosage: 1 UNK, UNK
  4. CATAPRESSAN                        /00171101/ [Concomitant]
     Indication: HEADACHE
     Dosage: 2 DF, QD IN THE EVENING
  5. RIVOTRIL [Concomitant]
     Indication: HEADACHE
  6. MICARDIS [Concomitant]
     Indication: HYPERTENSION
     Dosage: 1 UNK, UNK
  7. AMITRIPTYLINE HCL [Concomitant]
     Indication: HEADACHE
     Dosage: 25 DROPS MORNING + 50 DROPS NOON + 25 DROPS EVENIN
     Dates: start: 19900101
  8. ROPINIROLE HYDROCHLORIDE [Concomitant]
     Dosage: 0.15 DF, QD (EVENING)
  9. METFORMINE [Concomitant]
     Indication: TYPE 2 DIABETES MELLITUS
     Dosage: 1000 UNK, TID
  10. ACTOS [Concomitant]
     Indication: TYPE 2 DIABETES MELLITUS
     Dosage: 45 UNK, UNK
  11. FUROSEMIDE [Concomitant]
     Indication: HYPERTENSION
  12. OMEPRAZOLE [Concomitant]
     Dosage: 1 IN THE EVENING
  13. AMLODIPINE BESYLATE [Concomitant]
     Indication: HYPERTENSION
  14. TRIATEC                            /00116401/ [Concomitant]
     Indication: HYPERTENSION
     Dosage: 4 UNK, UNK
  15. OMACOR                             /00931501/ [Concomitant]
     Indication: HYPERTRIGLYCERIDAEMIA

REACTIONS (6)
  - PANCREATITIS [None]
  - VOMITING [None]
  - BLOOD AMYLASE INCREASED [None]
  - DIARRHOEA [None]
  - LIPASE INCREASED [None]
  - ABDOMINAL PAIN [None]
